FAERS Safety Report 7599879-4 (Version None)
Quarter: 2011Q3

REPORT INFORMATION
  Report Type: 
  Country: None (occurrence: None)
  Receive Date: 20110711
  Receipt Date: 20110706
  Transmission Date: 20111222
  Serious: No
  Sender: FDA-Public Use
  Company Number: US-PFIZER INC-2011041179

PATIENT
  Sex: Female
  Weight: 56.689 kg

DRUGS (7)
  1. PRISTIQ [Suspect]
     Indication: PANIC DISORDER
  2. PRISTIQ [Suspect]
     Indication: DEPRESSION
  3. FOSAMAX [Concomitant]
     Dosage: 75 MG PER DAY
     Dates: end: 20110322
  4. PRISTIQ [Suspect]
     Indication: ANXIETY
     Dosage: 50 MG, 1X/DAY
     Route: 048
     Dates: start: 20110210, end: 20110324
  5. NEURONTIN [Concomitant]
     Dosage: 100 MG PER DAY
     Dates: end: 20110322
  6. ALENDRONIC ACID [Concomitant]
     Indication: OSTEOPOROSIS
     Dosage: 35 MG, UNK
     Dates: start: 20070101
  7. ALENDRONIC ACID [Concomitant]
     Indication: OSTEOPENIA

REACTIONS (5)
  - BURNING SENSATION [None]
  - NAUSEA [None]
  - CONSTIPATION [None]
  - DYSURIA [None]
  - HEADACHE [None]
